FAERS Safety Report 25735856 (Version 1)
Quarter: 2025Q3

REPORT INFORMATION
  Report Type: Spontaneous
  Country: EU (occurrence: EU)
  Receive Date: 20250828
  Receipt Date: 20250828
  Transmission Date: 20251021
  Serious: Yes (Hospitalization)
  Sender: ROCHE
  Company Number: None

PATIENT
  Age: 31 Year
  Sex: Female

DRUGS (4)
  1. RITUXIMAB [Suspect]
     Active Substance: RITUXIMAB
     Indication: Myopathy
     Route: 042
     Dates: start: 20250728
  2. PREDNISOLONE [Concomitant]
     Active Substance: PREDNISOLONE
     Dosage: PDN 20 MG/DAYINITIAL DOSE 80MG/DAY, NEVER WEANED BELOW 20M
     Route: 048
     Dates: start: 20230803
  3. HYDROXYCHLOROQUINE [Concomitant]
     Active Substance: HYDROXYCHLOROQUINE
     Dosage: HDQ 400 MG/DAY - FROM 04/24
     Route: 048
     Dates: start: 202404
  4. DOMPERIDONE [Concomitant]
     Active Substance: DOMPERIDONE
     Route: 048

REACTIONS (3)
  - Periorbital oedema [Recovered/Resolved]
  - Tongue oedema [Recovered/Resolved]
  - Rash [Recovered/Resolved]

NARRATIVE: CASE EVENT DATE: 20250811
